FAERS Safety Report 6167315-0 (Version None)
Quarter: 2009Q2

REPORT INFORMATION
  Report Type: 
  Country: None (occurrence: None)
  Receive Date: 20090424
  Receipt Date: 20090413
  Transmission Date: 20091009
  Serious: No
  Sender: FDA-Public Use
  Company Number: US-BAYER-200918348NA

PATIENT
  Age: 52 Year
  Sex: Female
  Weight: 95 kg

DRUGS (1)
  1. MAGNEVIST [Suspect]
     Indication: NUCLEAR MAGNETIC RESONANCE IMAGING
     Dosage: TOTAL DAILY DOSE: 19 ML  UNIT DOSE: 100 ML
     Route: 042
     Dates: start: 20090410, end: 20090410

REACTIONS (7)
  - DYSPHAGIA [None]
  - ERYTHEMA [None]
  - EYE SWELLING [None]
  - HEADACHE [None]
  - LACRIMATION INCREASED [None]
  - NASAL CONGESTION [None]
  - SNEEZING [None]
